FAERS Safety Report 16866339 (Version 1)
Quarter: 2019Q3

REPORT INFORMATION
  Report Type: Spontaneous
  Country: US (occurrence: US)
  Receive Date: 20190930
  Receipt Date: 20190930
  Transmission Date: 20191005
  Serious: Yes (Other)
  Sender: FDA-Public Use
  Company Number: US-UCBSA-2019040244

PATIENT
  Sex: Female

DRUGS (1)
  1. VIMPAT [Suspect]
     Active Substance: LACOSAMIDE
     Indication: PRODUCT USED FOR UNKNOWN INDICATION
     Dosage: 600 MILLIGRAM, DAILY

REACTIONS (6)
  - Petit mal epilepsy [Unknown]
  - Flushing [Unknown]
  - Abdominal discomfort [Unknown]
  - Diplopia [Unknown]
  - Tic [Unknown]
  - Intentional overdose [Unknown]
